FAERS Safety Report 16901405 (Version 1)
Quarter: 2019Q4

REPORT INFORMATION
  Report Type: Report from Study
  Country: IT (occurrence: IT)
  Receive Date: 20191009
  Receipt Date: 20191009
  Transmission Date: 20200122
  Serious: Yes (Other)
  Sender: FDA-Public Use
  Company Number: IT-TEVA-2019-IT-1117805

PATIENT
  Age: 43 Year
  Sex: Female

DRUGS (1)
  1. KETOPROFEN LYSINE [Suspect]
     Active Substance: KETOPROFEN LYSINE
     Indication: PAIN
     Route: 048
     Dates: start: 20190825, end: 20190825

REACTIONS (2)
  - Lip oedema [Not Recovered/Not Resolved]
  - Oedema peripheral [Not Recovered/Not Resolved]

NARRATIVE: CASE EVENT DATE: 20190826
